FAERS Safety Report 17919442 (Version 1)
Quarter: 2020Q2

REPORT INFORMATION
  Report Type: Report from Study
  Country: None (occurrence: US)
  Receive Date: 20200620
  Receipt Date: 20200620
  Transmission Date: 20200714
  Serious: Yes (Other)
  Sender: FDA-Public Use
  Company Number: US-ABBVIE-20K-163-3301677-00

PATIENT
  Age: 65 Year
  Sex: Male
  Weight: 158.9 kg

DRUGS (1)
  1. HUMIRA [Suspect]
     Active Substance: ADALIMUMAB
     Indication: PSORIASIS
     Dosage: CITRATE FREE
     Route: 058

REACTIONS (8)
  - Pain [Unknown]
  - Pain [Not Recovered/Not Resolved]
  - Shoulder operation [Unknown]
  - Hypersensitivity [Unknown]
  - Medical device site hypersensitivity [Unknown]
  - Dyspnoea [Unknown]
  - Rotator cuff syndrome [Not Recovered/Not Resolved]
  - Blood glucose increased [Unknown]

NARRATIVE: CASE EVENT DATE: 201812
